FAERS Safety Report 5104047-1 (Version None)
Quarter: 2006Q3

REPORT INFORMATION
  Report Type: 
  Country: None (occurrence: None)
  Receive Date: 20060908
  Receipt Date: 20060831
  Transmission Date: 20061208
  Serious: Yes (Other)
  Sender: FDA-Public Use
  Company Number: SPV1-2006-00629

PATIENT
  Age: 30 Year
  Sex: Male
  Weight: 90.7 kg

DRUGS (3)
  1. ADDERALL 10 [Suspect]
     Indication: ATTENTION DEFICIT/HYPERACTIVITY DISORDER
     Dosage: 20 MG, 2X/DAY:  BID,
     Dates: start: 19940101
  2. LEXAPRO (ESCITALOPRAM OXALATE) [Concomitant]
  3. VITAMINS [Concomitant]

REACTIONS (9)
  - AMNESIA [None]
  - CARDIOMYOPATHY [None]
  - FALL [None]
  - HEAT STROKE [None]
  - HOT FLUSH [None]
  - HYPERTENSION [None]
  - LOSS OF CONSCIOUSNESS [None]
  - MEMORY IMPAIRMENT [None]
  - PARAESTHESIA [None]
